FAERS Safety Report 10026866 (Version 1)
Quarter: 2014Q1

REPORT INFORMATION
  Report Type: Report from Study
  Country: US (occurrence: US)
  Receive Date: 20140321
  Receipt Date: 20140321
  Transmission Date: 20141002
  Serious: No
  Sender: FDA-Public Use
  Company Number: US-009507513-1403USA005379

PATIENT
  Age: 20 Year
  Sex: Female
  Weight: 70.3 kg

DRUGS (1)
  1. IMPLANON [Suspect]
     Indication: CONTRACEPTION
     Dosage: UNK
     Route: 059
     Dates: start: 20120605, end: 20140310

REACTIONS (2)
  - Medical device removal [Unknown]
  - Vaginal haemorrhage [Unknown]
